FAERS Safety Report 4269485-8 (Version None)
Quarter: 2004Q1

REPORT INFORMATION
  Report Type: 
  Country: None (occurrence: None)
  Receive Date: 20040113
  Receipt Date: 20040105
  Transmission Date: 20041129
  Serious: Yes (Hospitalization)
  Sender: FDA-Public Use
  Company Number: BE-ROCHE-355042

PATIENT
  Age: 55 Year
  Sex: Female
  Weight: 50.5 kg

DRUGS (8)
  1. DACLIZUMAB [Suspect]
     Route: 042
     Dates: start: 20031012, end: 20031012
  2. DACLIZUMAB [Suspect]
     Dosage: FOR A TOTAL OF FOUR DOSES
     Route: 042
     Dates: end: 20031203
  3. MYCOPHENOLATE MOFETIL [Suspect]
     Route: 048
     Dates: start: 20031012
  4. TACROLIMUS [Suspect]
     Route: 048
     Dates: start: 20031012
  5. METHYLPREDNISOLONE [Suspect]
     Route: 048
     Dates: start: 20031014
  6. FOSAMAX [Concomitant]
     Route: 048
     Dates: start: 20031110
  7. TAGAMET [Concomitant]
     Route: 048
     Dates: start: 20031014
  8. BACTRIM [Concomitant]
     Dosage: UNITS NOT SPECIFIED.
     Route: 048
     Dates: start: 20031012

REACTIONS (1)
  - CYTOMEGALOVIRUS INFECTION [None]
